FAERS Safety Report 14819126 (Version 1)
Quarter: 2018Q2

REPORT INFORMATION
  Report Type: Spontaneous
  Country: GB (occurrence: GB)
  Receive Date: 20180427
  Receipt Date: 20180427
  Transmission Date: 20180711
  Serious: Yes (Other)
  Sender: FDA-Public Use
  Company Number: GB-DRREDDYS-GER/UKI/18/0098195

PATIENT
  Age: 47 Year
  Sex: Female
  Weight: 64.86 kg

DRUGS (5)
  1. OLANZAPINE. [Suspect]
     Active Substance: OLANZAPINE
     Indication: ACUTE PSYCHOSIS
     Route: 048
     Dates: start: 20160707, end: 201609
  2. OLANZAPINE. [Suspect]
     Active Substance: OLANZAPINE
     Indication: ACUTE PSYCHOSIS
  3. OLANZAPINE. [Suspect]
     Active Substance: OLANZAPINE
     Indication: ACUTE PSYCHOSIS
     Dosage: GRADUALLY REDUCING BY 10% EVERY 6 WEEKS OR SO.
     Dates: start: 20170307
  4. OLANZAPINE. [Suspect]
     Active Substance: OLANZAPINE
     Indication: ACUTE PSYCHOSIS
     Dates: end: 201703
  5. SUMATRIPTAN. [Concomitant]
     Active Substance: SUMATRIPTAN
     Indication: MIGRAINE
     Dosage: 25-50MG

REACTIONS (7)
  - Palpitations [Recovering/Resolving]
  - Depression [Unknown]
  - Suicidal ideation [Unknown]
  - Terminal insomnia [Recovering/Resolving]
  - Nausea [Recovering/Resolving]
  - Withdrawal syndrome [Unknown]
  - Anxiety [Recovering/Resolving]

NARRATIVE: CASE EVENT DATE: 20160707
